FAERS Safety Report 4434254-2 (Version None)
Quarter: 2004Q3

REPORT INFORMATION
  Report Type: 
  Country: None (occurrence: None)
  Receive Date: 20040726
  Receipt Date: 20040406
  Transmission Date: 20050211
  Serious: No
  Sender: FDA-Public Use
  Company Number: USA040157718

PATIENT
  Sex: Female

DRUGS (1)
  1. FORTEO [Suspect]
     Dates: start: 20030101

REACTIONS (7)
  - ASTHENIA [None]
  - BALANCE DISORDER [None]
  - BLOOD PRESSURE DECREASED [None]
  - DIZZINESS [None]
  - FALL [None]
  - HEART RATE INCREASED [None]
  - SOMNOLENCE [None]
